FAERS Safety Report 5890246-8 (Version None)
Quarter: 2008Q3

REPORT INFORMATION
  Report Type: 
  Country: None (occurrence: None)
  Receive Date: 20080919
  Receipt Date: 20080911
  Transmission Date: 20090109
  Serious: Yes (Other)
  Sender: FDA-Public Use
  Company Number: JP-PFIZER INC-2008076868

PATIENT
  Age: 40 Year
  Sex: Male

DRUGS (5)
  1. DOXAZOSIN MESYLATE [Suspect]
  2. AMLODIPINE [Suspect]
  3. LOSARTAN [Concomitant]
     Route: 048
  4. METHYLDOPA [Concomitant]
     Route: 048
  5. BISOPROLOL FUMARATE [Concomitant]
     Route: 048

REACTIONS (4)
  - GLOMERULONEPHROPATHY [None]
  - KIDNEY FIBROSIS [None]
  - RENAL ARTERIOSCLEROSIS [None]
  - RENAL VESSEL DISORDER [None]
